FAERS Safety Report 4466951-7 (Version None)
Quarter: 2004Q4

REPORT INFORMATION
  Report Type: 
  Country: None (occurrence: None)
  Receive Date: 20041006
  Receipt Date: 20040922
  Transmission Date: 20050328
  Serious: Yes (Other)
  Sender: FDA-Public Use
  Company Number: 200413568FR

PATIENT
  Age: 50 Year
  Sex: Male

DRUGS (4)
  1. LOVENOX [Suspect]
     Indication: THROMBOSIS PROPHYLAXIS
     Route: 058
     Dates: start: 20040908
  2. FERO-GRAD [Concomitant]
     Route: 048
  3. FOLIC ACID [Concomitant]
     Route: 048
  4. OFLOCET [Concomitant]
     Route: 048

REACTIONS (1)
  - THROMBOCYTHAEMIA [None]
